FAERS Safety Report 9940288 (Version 2)
Quarter: 2014Q1

REPORT INFORMATION
  Report Type: Spontaneous
  Country: US (occurrence: US)
  Receive Date: 20140303
  Receipt Date: 20140303
  Transmission Date: 20141002
  Serious: Yes (Hospitalization)
  Sender: FDA-Public Use
  Company Number: US-BAXTER-2014BAX009330

PATIENT
  Age: 61 Year
  Sex: Male

DRUGS (1)
  1. DIANEAL LOW CALCIUM [Suspect]
     Indication: RENAL FAILURE CHRONIC
     Route: 033
     Dates: start: 20130313

REACTIONS (3)
  - Coronary artery occlusion [Recovering/Resolving]
  - Pleural effusion [Recovering/Resolving]
  - Post procedural complication [Recovering/Resolving]
